FAERS Safety Report 15386338 (Version 1)
Quarter: 2018Q3

REPORT INFORMATION
  Report Type: Spontaneous
  Country: US (occurrence: US)
  Receive Date: 20180907
  Receipt Date: 20180907
  Transmission Date: 20181010
  Serious: Yes (Hospitalization)
  Sender: FDA-Public Use
  Company Number: None

PATIENT
  Age: 80 Year
  Sex: Male

DRUGS (1)
  1. RIVAROXABAN [Suspect]
     Active Substance: RIVAROXABAN
     Indication: ATRIAL FIBRILLATION
     Route: 048

REACTIONS (14)
  - Atrial fibrillation [None]
  - Subarachnoid haemorrhage [None]
  - Bursitis [None]
  - Fall [None]
  - Head injury [None]
  - Ear abrasion [None]
  - Headache [None]
  - Skin abrasion [None]
  - Contusion [None]
  - Incontinence [None]
  - Decreased appetite [None]
  - Muscular weakness [None]
  - Subdural haematoma [None]
  - Haemorrhage intracranial [None]

NARRATIVE: CASE EVENT DATE: 20180726
